FAERS Safety Report 6906125-0 (Version None)
Quarter: 2010Q3

REPORT INFORMATION
  Report Type: 
  Country: None (occurrence: None)
  Receive Date: 20100802
  Receipt Date: 20100729
  Transmission Date: 20110219
  Serious: Yes (Hospitalization)
  Sender: FDA-Public Use
  Company Number: 2010SP041345

PATIENT
  Age: 30 Year
  Sex: Male

DRUGS (2)
  1. AVANZA (MIRTAZAPINE / 01293201 / ) [Suspect]
     Indication: DEPRESSION
     Dosage: 30 MG
     Dates: start: 20100701
  2. LEXAPRO [Concomitant]

REACTIONS (4)
  - CONFUSIONAL STATE [None]
  - FEELING ABNORMAL [None]
  - HALLUCINATION [None]
  - SUICIDAL IDEATION [None]
